FAERS Safety Report 7771894-7 (Version None)
Quarter: 2011Q3

REPORT INFORMATION
  Report Type: 
  Country: None (occurrence: None)
  Receive Date: 20110922
  Receipt Date: 20110610
  Transmission Date: 20111222
  Serious: No
  Sender: FDA-Public Use
  Company Number: US-ASTRAZENECA-2011SE35621

PATIENT
  Age: 41 Year
  Sex: Female
  Weight: 95.3 kg

DRUGS (7)
  1. BENTYL [Concomitant]
  2. ALBUTEROL [Concomitant]
  3. LISINOPRIL [Concomitant]
  4. GEMFIBROZIL [Concomitant]
  5. SEROQUEL [Suspect]
     Route: 048
     Dates: start: 20110401, end: 20110501
  6. SEROQUEL [Suspect]
     Route: 048
     Dates: start: 20110501
  7. BENADRYL [Concomitant]

REACTIONS (4)
  - FATIGUE [None]
  - MOOD SWINGS [None]
  - DRUG PRESCRIBING ERROR [None]
  - DRUG INEFFECTIVE [None]
